FAERS Safety Report 19238606 (Version 2)
Quarter: 2022Q2

REPORT INFORMATION
  Report Type: Spontaneous
  Country: US (occurrence: US)
  Receive Date: 20210510
  Receipt Date: 20220406
  Transmission Date: 20220720
  Serious: No
  Sender: FDA-Public Use
  Company Number: US-PFIZER INC-2021477207

PATIENT
  Age: 54 Year
  Sex: Female

DRUGS (1)
  1. XELJANZ XR [Suspect]
     Active Substance: TOFACITINIB CITRATE
     Dosage: 11 MG, DAILY

REACTIONS (4)
  - Pain [Unknown]
  - Joint swelling [Unknown]
  - Arthralgia [Unknown]
  - Peripheral swelling [Unknown]

NARRATIVE: CASE EVENT DATE: 20210401
